FAERS Safety Report 24344039 (Version 1)
Quarter: 2024Q3

REPORT INFORMATION
  Report Type: Spontaneous
  Country: US (occurrence: US)
  Receive Date: 20240920
  Receipt Date: 20240920
  Transmission Date: 20241016
  Serious: No
  Sender: MERCK
  Company Number: US-009507513-2408USA010546

PATIENT
  Age: 8 Year
  Sex: Male

DRUGS (3)
  1. TEMODAR [Suspect]
     Active Substance: TEMOZOLOMIDE
     Indication: Malignant glioma
     Dosage: UNK, CONCURRENT WITH RADIOTHERAPY
  2. TEMODAR [Suspect]
     Active Substance: TEMOZOLOMIDE
     Dosage: UNK, MAINTENANCE CHEMOTHERAPY, 6 CYCLES
  3. LOMUSTINE [Concomitant]
     Active Substance: LOMUSTINE
     Dosage: UNK, MAINTENANCE CHEMOTHERAPY, 6 CYCLES

REACTIONS (2)
  - Product administered to patient of inappropriate age [Unknown]
  - Product use issue [Unknown]
